FAERS Safety Report 15665173 (Version 1)
Quarter: 2018Q4

REPORT INFORMATION
  Report Type: Spontaneous
  Country: FR (occurrence: FR)
  Receive Date: 20181128
  Receipt Date: 20181128
  Transmission Date: 20190205
  Serious: Yes (Hospitalization)
  Sender: FDA-Public Use
  Company Number: FR-ROCHE-2220627

PATIENT
  Age: 60 Year
  Sex: Male
  Weight: 95 kg

DRUGS (7)
  1. PREVISCAN (FRANCE) [Suspect]
     Active Substance: FLUINDIONE
     Indication: ATRIAL FIBRILLATION
     Route: 048
     Dates: end: 20181020
  2. IMOVANE [Suspect]
     Active Substance: ZOPICLONE
     Indication: INSOMNIA
     Route: 048
     Dates: end: 20181020
  3. VALIUM [Suspect]
     Active Substance: DIAZEPAM
     Indication: ANXIETY
     Route: 048
     Dates: end: 20181021
  4. HALDOL [Suspect]
     Active Substance: HALOPERIDOL
     Indication: DELIRIUM
     Route: 048
     Dates: start: 201810, end: 20181019
  5. LOXAPAC [Suspect]
     Active Substance: LOXAPINE
     Indication: DELIRIUM
     Route: 048
     Dates: start: 201810, end: 20181021
  6. FLECAINE [Concomitant]
     Active Substance: FLECAINIDE
     Route: 065
  7. TRANXENE [Suspect]
     Active Substance: CLORAZEPATE DIPOTASSIUM
     Indication: DELIRIUM
     Route: 048
     Dates: start: 201810, end: 20181020

REACTIONS (1)
  - Ischaemic stroke [Recovering/Resolving]

NARRATIVE: CASE EVENT DATE: 20181020
